FAERS Safety Report 16499706 (Version 1)
Quarter: 2019Q3

REPORT INFORMATION
  Report Type: Spontaneous
  Country: IS (occurrence: IS)
  Receive Date: 20190701
  Receipt Date: 20190701
  Transmission Date: 20191004
  Serious: Yes (Hospitalization, Other)
  Sender: FDA-Public Use
  Company Number: IS-LUPIN PHARMACEUTICALS INC.-2019-03857

PATIENT
  Age: 77 Year
  Sex: Female

DRUGS (5)
  1. MORPHINE SULPHATE EXTENDED RELEASE TABLET [Suspect]
     Active Substance: MORPHINE SULFATE
     Indication: BACK PAIN
     Dosage: UNK
     Route: 065
  2. MORPHINE SULPHATE EXTENDED RELEASE TABLET [Suspect]
     Active Substance: MORPHINE SULFATE
     Dosage: UNK (LOWER DOSE THAN BEFORE)
     Route: 065
  3. TRAMADOL. [Suspect]
     Active Substance: TRAMADOL
     Indication: BACK PAIN
     Dosage: UNK
     Route: 065
  4. PARKODIN [Suspect]
     Active Substance: ACETAMINOPHEN\CODEINE PHOSPHATE
     Indication: BACK PAIN
     Dosage: UNK
     Route: 065
  5. PARACETAMOL [Concomitant]
     Active Substance: ACETAMINOPHEN
     Indication: BACK PAIN
     Dosage: UNK
     Route: 065

REACTIONS (1)
  - Hypothalamo-pituitary disorder [Recovering/Resolving]
